FAERS Safety Report 8979387 (Version 1)
Quarter: 2012Q4

REPORT INFORMATION
  Report Type: 
  Country: US (occurrence: US)
  Receive Date: 20121221
  Receipt Date: 20121221
  Transmission Date: 20130627
  Serious: Yes (Hospitalization, Other)
  Sender: FDA-Public Use
  Company Number: US-MERCK-1212USA007940

PATIENT
  Age: 57 None
  Sex: Male
  Weight: 86.17 kg

DRUGS (7)
  1. PEGINTRON [Suspect]
     Dosage: mix as directed, dail to 0.5ml and inject subq weekly as directed by physician, 150 MCG/0.5ML,qw
     Route: 058
  2. XANAX TABLETS [Concomitant]
     Dosage: 0.25 mg, UNK
  3. FUROSEMIDE [Concomitant]
     Dosage: 40 mg, UNK
  4. CIPROFLOXACIN [Concomitant]
     Dosage: 750 mg, UNK
  5. OMEPRAZOLE [Concomitant]
     Dosage: 20 mg, UNK
  6. SPIRONOLACT [Concomitant]
     Dosage: 50 mg, UNK
  7. ACETAMINOPHEN (+) HYDROCODONE BITARTRATE [Concomitant]
     Dosage: 10-750 mg

REACTIONS (2)
  - Hepatic cancer [Unknown]
  - Loss of consciousness [Unknown]
